APPROVED DRUG PRODUCT: IMPOYZ
Active Ingredient: CLOBETASOL PROPIONATE
Strength: 0.025%
Dosage Form/Route: CREAM;TOPICAL
Application: N209483 | Product #001
Applicant: PRIMUS PHARMACEUTICALS INC
Approved: Nov 28, 2017 | RLD: Yes | RS: Yes | Type: RX

PATENTS:
Patent 10064875 | Expires: Aug 31, 2030
Patent 10064875 | Expires: Aug 31, 2030
Patent 9956231 | Expires: Aug 31, 2030
Patent 10064875 | Expires: Aug 31, 2030
Patent 10064875 | Expires: Aug 31, 2030
Patent 9956231 | Expires: Aug 31, 2030
Patent 9956231 | Expires: Aug 31, 2030
Patent 9956231 | Expires: Aug 31, 2030
Patent 9956231 | Expires: Aug 31, 2030
Patent 10064875 | Expires: Aug 31, 2030
Patent 10588914 | Expires: Aug 31, 2030
Patent 9956231 | Expires: Aug 31, 2030
Patent 9855334 | Expires: Mar 11, 2035